FAERS Safety Report 5806042-3 (Version None)
Quarter: 2008Q3

REPORT INFORMATION
  Report Type: 
  Country: None (occurrence: None)
  Receive Date: 20080710
  Receipt Date: 20080703
  Transmission Date: 20090109
  Serious: Yes (Hospitalization)
  Sender: FDA-Public Use
  Company Number: JP-ASTRAZENECA-2008AP05185

PATIENT
  Age: 40 Year
  Sex: Female

DRUGS (2)
  1. ANAPEINE INJECTION [Suspect]
     Indication: EPIDURAL ANAESTHESIA
     Route: 008
     Dates: start: 20080520, end: 20080520
  2. ANAPEINE INJECTION [Suspect]
     Route: 008
     Dates: start: 20080520, end: 20080521

REACTIONS (1)
  - MOVEMENT DISORDER [None]
